FAERS Safety Report 7235152-1 (Version None)
Quarter: 2011Q1

REPORT INFORMATION
  Report Type: 
  Country: None (occurrence: None)
  Receive Date: 20110114
  Receipt Date: 20110114
  Transmission Date: 20110831
  Serious: Yes (Other)
  Sender: FDA-Public Use
  Company Number: None

PATIENT
  Age: 4 Year
  Sex: Female
  Weight: 14.6 kg

DRUGS (7)
  1. STOCRIN -EFAVIRENZ- 50 MG AUROBINDO PHARM [Suspect]
     Indication: HIV INFECTION
     Dosage: 100 MG OD PO
     Route: 048
     Dates: start: 20101018, end: 20101122
  2. LAMIVUDINE [Concomitant]
  3. STOCRIN -EFAVIRENZ- 200 MG AUROBINDO PHARM [Suspect]
  4. STOCRIN -EFAVIRENZ- 200 MG AUROBINDO PHARM [Suspect]
     Indication: HIV INFECTION
     Dosage: 200 MG OD PO
     Route: 048
     Dates: start: 20101018, end: 20101122
  5. STAVUDINE [Concomitant]
  6. STOCRIN -EFAVIRENZ- 50 MG AUROBINDO PHARM [Suspect]
  7. MULTI-VITAMIN [Concomitant]

REACTIONS (3)
  - PRODUCT SUBSTITUTION ISSUE [None]
  - ELECTROENCEPHALOGRAM ABNORMAL [None]
  - PETIT MAL EPILEPSY [None]
